FAERS Safety Report 12835084 (Version 1)
Quarter: 2016Q4

REPORT INFORMATION
  Report Type: Spontaneous
  Country: US (occurrence: US)
  Receive Date: 20161010
  Receipt Date: 20161010
  Transmission Date: 20170207
  Serious: No
  Sender: FDA-Public Use
  Company Number: US-BIOGEN-2016BI00300361

PATIENT
  Sex: Male

DRUGS (1)
  1. TECFIDERA [Suspect]
     Active Substance: DIMETHYL FUMARATE
     Indication: MULTIPLE SCLEROSIS
     Dosage: MAINTENANCE DOSE
     Route: 048
     Dates: start: 20160421, end: 20160729

REACTIONS (4)
  - Confusional state [Recovered/Resolved]
  - Frustration tolerance decreased [Recovered/Resolved]
  - General symptom [Recovered/Resolved]
  - Memory impairment [Recovered/Resolved]
